FAERS Safety Report 4951549-4 (Version None)
Quarter: 2006Q1

REPORT INFORMATION
  Report Type: 
  Country: None (occurrence: None)
  Receive Date: 20060317
  Receipt Date: 20060308
  Transmission Date: 20060701
  Serious: Yes (Hospitalization)
  Sender: FDA-Public Use
  Company Number: 2006034479

PATIENT
  Age: 28 Year
  Sex: Male
  Weight: 80 kg

DRUGS (1)
  1. DOLONEX DT (PIROXICAM [Suspect]
     Indication: PAIN
     Dosage: 20 MG (20 MG, SINGLE DOSE), ORAL
     Route: 048
     Dates: start: 20060308, end: 20060308

REACTIONS (1)
  - BLOOD PRESSURE ABNORMAL [None]
